FAERS Safety Report 20735403 (Version 1)
Quarter: 2022Q2

REPORT INFORMATION
  Report Type: Spontaneous
  Country: US (occurrence: None)
  Receive Date: 20220421
  Receipt Date: 20220421
  Transmission Date: 20220721
  Serious: Yes (Hospitalization)
  Sender: FDA-Public Use
  Company Number: None

PATIENT
  Age: 82 Year
  Sex: Male
  Weight: 82.8 kg

DRUGS (1)
  1. IMBRUVICA [Suspect]
     Active Substance: IBRUTINIB
     Indication: Chronic lymphocytic leukaemia
     Dosage: FREQUENCY : DAILY;?
     Route: 048
     Dates: start: 20201102, end: 20220403

REACTIONS (9)
  - Cardiac arrest [None]
  - Dyspnoea [None]
  - Fatigue [None]
  - Troponin increased [None]
  - Electrocardiogram abnormal [None]
  - Fibrin D dimer increased [None]
  - Pleural effusion [None]
  - Acute kidney injury [None]
  - Cardiomyopathy [None]

NARRATIVE: CASE EVENT DATE: 20220403
